FAERS Safety Report 5805802-2 (Version None)
Quarter: 2008Q3

REPORT INFORMATION
  Report Type: 
  Country: None (occurrence: None)
  Receive Date: 20080708
  Receipt Date: 20080708
  Transmission Date: 20090109
  Serious: Yes (Hospitalization)
  Sender: FDA-Public Use
  Company Number: None

PATIENT
  Age: 74 Year
  Sex: Male
  Weight: 80.74 kg

DRUGS (1)
  1. PREDNISONE TAB [Suspect]
     Dosage: 10 MG EVERY DAY PO
     Route: 048
     Dates: start: 20080415, end: 20080430

REACTIONS (3)
  - AGGRESSION [None]
  - HALLUCINATION [None]
  - MENTAL STATUS CHANGES [None]
